FAERS Safety Report 7587765-5 (Version None)
Quarter: 2011Q3

REPORT INFORMATION
  Report Type: 
  Country: None (occurrence: None)
  Receive Date: 20110705
  Receipt Date: 20110627
  Transmission Date: 20111222
  Serious: No
  Sender: FDA-Public Use
  Company Number: US-BIOGENIDEC-2010BI020075

PATIENT
  Age: 49 Year
  Sex: Female

DRUGS (1)
  1. TYSABRI [Suspect]
     Indication: MULTIPLE SCLEROSIS
     Route: 042
     Dates: start: 20080117

REACTIONS (5)
  - DEPRESSED MOOD [None]
  - DRUG EFFECT DECREASED [None]
  - GAIT DISTURBANCE [None]
  - FATIGUE [None]
  - SLUGGISHNESS [None]
